FAERS Safety Report 8515090-4 (Version None)
Quarter: 2012Q3

REPORT INFORMATION
  Report Type: 
  Country: None (occurrence: None)
  Receive Date: 20120717
  Receipt Date: 20120709
  Transmission Date: 20120928
  Serious: Yes (Hospitalization)
  Sender: FDA-Public Use
  Company Number: JP-JNJFOC-20120603864

PATIENT
  Sex: Male
  Weight: 82 kg

DRUGS (7)
  1. USTEKINUMAB [Suspect]
     Route: 058
     Dates: start: 20111013
  2. USTEKINUMAB [Suspect]
     Route: 058
     Dates: start: 20120329, end: 20120329
  3. USTEKINUMAB [Suspect]
     Route: 058
     Dates: start: 20120105
  4. CALCITRIOL [Concomitant]
     Route: 061
  5. ISONIAZID [Concomitant]
     Indication: PROPHYLAXIS
     Route: 048
  6. USTEKINUMAB [Suspect]
     Indication: PSORIASIS
     Route: 058
     Dates: start: 20110915
  7. DIFLUPREDNATE [Concomitant]
     Route: 061

REACTIONS (1)
  - LUNG NEOPLASM MALIGNANT [None]
